FAERS Safety Report 19949117 (Version 2)
Quarter: 2021Q4

REPORT INFORMATION
  Report Type: Spontaneous
  Country: FR (occurrence: FR)
  Receive Date: 20211013
  Receipt Date: 20211231
  Transmission Date: 20220303
  Serious: Yes (Other)
  Sender: FDA-Public Use
  Company Number: FR-AFSSAPS-AVLY20212778

PATIENT
  Age: 43 Year
  Sex: Male

DRUGS (4)
  1. PREGABALIN [Suspect]
     Active Substance: PREGABALIN
     Indication: Product used for unknown indication
     Dosage: 2 X 150 MG PER DAY ADVERTISED
     Route: 065
     Dates: start: 202107
  2. TRAMADOL [Suspect]
     Active Substance: TRAMADOL
     Indication: Product used for unknown indication
     Dosage: 4 TABLETS IN 1 DOSE ADVERTISED
     Route: 065
     Dates: start: 202107
  3. COCAINE [Suspect]
     Active Substance: COCAINE
     Indication: Product used for unknown indication
     Dosage: 1G / DAY ANNOUNCED
     Route: 042
     Dates: start: 2009
  4. HEROIN [Suspect]
     Active Substance: DIAMORPHINE
     Indication: Product used for unknown indication
     Dosage: UNSPECIFIED
     Route: 042
     Dates: start: 2011

REACTIONS (1)
  - Drug dependence [Unknown]
